FAERS Safety Report 6263831-1 (Version None)
Quarter: 2009Q3

REPORT INFORMATION
  Report Type: 
  Country: None (occurrence: None)
  Receive Date: 20090708
  Receipt Date: 20090708
  Transmission Date: 20100115
  Serious: Yes (Other)
  Sender: FDA-Public Use
  Company Number: None

PATIENT
  Age: 58 Year
  Sex: Female
  Weight: 60.9 kg

DRUGS (1)
  1. TOPIRAMATE [Suspect]
     Indication: MIGRAINE
     Dosage: 50 MG 1 TPD ORAL
     Route: 048
     Dates: start: 20090517, end: 20090613

REACTIONS (6)
  - CONTUSION [None]
  - DRUG INEFFECTIVE [None]
  - ECONOMIC PROBLEM [None]
  - MIGRAINE [None]
  - PAIN [None]
  - PRODUCT SUBSTITUTION ISSUE [None]
